FAERS Safety Report 8314506 (Version 1)
Quarter: 2020Q3

REPORT INFORMATION
  Report Type: Spontaneous
  Country: CN (occurrence: CN)
  Receive Date: 20111228
  Receipt Date: 20111228
  Transmission Date: 20201104
  Serious: Yes (Other)
  Sender: FDA-Public Use
  Company Number: CN-ASTRAZENECA-2011SE76545

PATIENT

DRUGS (4)
  1. PROPOFOL. [Suspect]
     Active Substance: PROPOFOL
     Indication: ANAESTHESIA
     Dosage: 1?2 MG/KG
     Route: 042
  2. ATROPINE. [Suspect]
     Active Substance: ATROPINE
     Dosage: 0.01?0.02 MG/KG 30 MIN BEFORE SURGERY
     Route: 030
  3. PHENOBARBITAL SODIUM. [Suspect]
     Active Substance: PHENOBARBITAL SODIUM
     Dosage: 2 MG/KG 30 MIN BEFORE SURGERY
     Route: 030
  4. KETAMINE HYDROCHLORIDE. [Suspect]
     Active Substance: KETAMINE HYDROCHLORIDE
     Indication: ANAESTHESIA
     Dosage: 5 MG/KG
     Route: 030

REACTIONS (4)
  - Asphyxia [Recovered/Resolved]
  - Muscle spasms [Recovered/Resolved]
  - Vomiting [Recovered/Resolved]
  - Cyanosis [Recovered/Resolved]
